FAERS Safety Report 7683307-4 (Version None)
Quarter: 2011Q3

REPORT INFORMATION
  Report Type: 
  Country: None (occurrence: None)
  Receive Date: 20110815
  Receipt Date: 20110802
  Transmission Date: 20111222
  Serious: Yes (Other)
  Sender: FDA-Public Use
  Company Number: FR-GLAXOSMITHKLINE-B0736729A

PATIENT
  Sex: Female
  Weight: 56.6 kg

DRUGS (17)
  1. SINGULAIR [Concomitant]
     Dosage: 10MG AT NIGHT
     Route: 048
  2. SINEMET [Concomitant]
     Dosage: 50MG THREE TIMES PER DAY
     Route: 048
  3. RABEPRAZOLE SODIUM [Concomitant]
     Dosage: 40MG AT NIGHT
     Route: 048
  4. MOTILIUM [Concomitant]
     Dosage: 10MG PER DAY
     Route: 048
  5. EXTOVYL [Concomitant]
     Dosage: 12MG THREE TIMES PER DAY
     Route: 048
  6. FIXICAL VITAMINE D3 [Concomitant]
     Dosage: 1TAB PER DAY
     Route: 048
  7. CLONAZEPAM [Concomitant]
     Dosage: 5DROP AT NIGHT
  8. TRAMADOL HCL [Concomitant]
     Dosage: 50MG PER DAY
     Route: 048
  9. CRESTOR [Concomitant]
     Dosage: 5MG AT NIGHT
     Route: 048
  10. PLAVIX [Suspect]
     Dosage: 75MG PER DAY
     Dates: start: 20110527, end: 20110601
  11. ISOSORBIDE DINITRATE [Concomitant]
     Dosage: 40MG THREE TIMES PER DAY
     Route: 048
  12. ISOPTIN [Concomitant]
     Dosage: 120MG IN THE MORNING
     Route: 048
  13. DOMPERIDONE [Concomitant]
  14. LYRICA [Concomitant]
     Dosage: 25MG THREE TIMES PER DAY
     Route: 048
  15. OLMESARTAN MEDOXOMIL [Concomitant]
     Dosage: 10MG IN THE MORNING
     Route: 048
  16. ARIXTRA [Suspect]
     Indication: THROMBOSIS PROPHYLAXIS
     Dosage: 2.5MG PER DAY
     Dates: start: 20110527, end: 20110601
  17. ACTONEL [Concomitant]
     Dosage: 35MG IN THE MORNING
     Route: 048

REACTIONS (1)
  - HAEMORRHAGIC DISORDER [None]
